FAERS Safety Report 5994304-9 (Version None)
Quarter: 2008Q4

REPORT INFORMATION
  Report Type: 
  Country: None (occurrence: None)
  Receive Date: 20081212
  Receipt Date: 20080904
  Transmission Date: 20090506
  Serious: No
  Sender: FDA-Public Use
  Company Number: US-ABBOTT-08P-163-0474816-00

PATIENT
  Sex: Female

DRUGS (2)
  1. HUMIRA [Suspect]
     Indication: ANKYLOSING SPONDYLITIS
     Route: 050
     Dates: start: 20070801
  2. HUMIRA [Suspect]
     Route: 050

REACTIONS (2)
  - INFECTIOUS MONONUCLEOSIS [None]
  - LYMPHADENOPATHY [None]
